FAERS Safety Report 5403901-0 (Version None)
Quarter: 2007Q3

REPORT INFORMATION
  Report Type: 
  Country: None (occurrence: None)
  Receive Date: 20070731
  Receipt Date: 20070731
  Transmission Date: 20080115
  Serious: Yes (Hospitalization)
  Sender: FDA-Public Use
  Company Number: None

PATIENT
  Age: 70 Year
  Sex: Male

DRUGS (2)
  1. METHADONE HCL [Suspect]
     Indication: PAIN
     Dosage: 10MG BID PO
     Route: 048
     Dates: start: 20070711, end: 20070725
  2. OXYCODONE HCL [Suspect]
     Indication: PAIN
     Dosage: 40MG BID PO
     Route: 048
     Dates: start: 20061222, end: 20070725

REACTIONS (3)
  - CONSTIPATION [None]
  - FALL [None]
  - URINARY RETENTION [None]
